FAERS Safety Report 17028045 (Version 1)
Quarter: 2019Q4

REPORT INFORMATION
  Report Type: Spontaneous
  Country: BR (occurrence: BR)
  Receive Date: 20191113
  Receipt Date: 20191113
  Transmission Date: 20200122
  Serious: Yes (Other)
  Sender: FDA-Public Use
  Company Number: NVSC2019BR034036

PATIENT
  Age: 6 Year
  Sex: Female

DRUGS (1)
  1. AMOXICILINA + CLAVULANATO DE POTASSIO [Suspect]
     Active Substance: AMOXICILLIN\CLAVULANATE POTASSIUM
     Indication: SINUSITIS
     Dosage: UNK
     Route: 065

REACTIONS (5)
  - Ear swelling [Unknown]
  - Mouth swelling [Unknown]
  - Erythema [Unknown]
  - Pruritus [Unknown]
  - Poisoning [Unknown]
